FAERS Safety Report 6532064-3 (Version None)
Quarter: 2010Q1

REPORT INFORMATION
  Report Type: 
  Country: None (occurrence: None)
  Receive Date: 20100108
  Receipt Date: 20091230
  Transmission Date: 20100710
  Serious: Yes (Other)
  Sender: FDA-Public Use
  Company Number: GXKR2009TR13942

PATIENT
  Age: 34 Year
  Sex: Female

DRUGS (1)
  1. VENLAFAXINE [Suspect]
     Indication: MAJOR DEPRESSION
     Dosage: 37.5 MG/DAY
     Route: 065

REACTIONS (7)
  - ANGIOEDEMA [None]
  - DYSPHAGIA [None]
  - HYPOAESTHESIA ORAL [None]
  - NAUSEA [None]
  - PARAESTHESIA [None]
  - SWOLLEN TONGUE [None]
  - VOMITING [None]
